FAERS Safety Report 6847408-2 (Version None)
Quarter: 2010Q3

REPORT INFORMATION
  Report Type: 
  Country: None (occurrence: None)
  Receive Date: 20100716
  Receipt Date: 20100708
  Transmission Date: 20110219
  Serious: Yes (Life-Threatening, Hospitalization, Other)
  Sender: FDA-Public Use
  Company Number: FR-JNJFOC-20100206591

PATIENT
  Age: 64 Year
  Sex: Male
  Weight: 98 kg

DRUGS (12)
  1. REMICADE [Suspect]
     Indication: PSORIASIS
     Dosage: INTIATED ABOUT 6 YEARS AGO; 43 INFUSIONS
     Route: 042
  2. REMICADE [Suspect]
     Indication: RHEUMATOID ARTHRITIS
     Dosage: INTIATED ABOUT 6 YEARS AGO; 43 INFUSIONS
     Route: 042
  3. METHOTREXATE [Suspect]
     Indication: ANTIBODY TEST POSITIVE
  4. METHOTREXATE [Suspect]
     Indication: RHEUMATOID ARTHRITIS
  5. SIMVASTATIN [Concomitant]
     Indication: HYPERCHOLESTEROLAEMIA
  6. ATACAND [Concomitant]
     Indication: HYPERTENSION
  7. PROPRANOLOL [Concomitant]
     Indication: HYPERTENSION
  8. SALAZOPYRINE [Concomitant]
  9. OROCAL D3 [Concomitant]
  10. FOLIC ACID [Concomitant]
  11. PREDNISONE [Concomitant]
  12. RIFAMATE [Concomitant]

REACTIONS (3)
  - DRUG EFFECT DECREASED [None]
  - METASTASES TO LUNG [None]
  - RENAL CANCER [None]
